FAERS Safety Report 23214252 (Version 1)
Quarter: 2023Q4

REPORT INFORMATION
  Report Type: Spontaneous
  Country: US (occurrence: None)
  Receive Date: 20231121
  Receipt Date: 20231121
  Transmission Date: 20240110
  Serious: No
  Sender: FDA-Public Use
  Company Number: None

PATIENT
  Age: 59 Year
  Sex: Male

DRUGS (1)
  1. GLUTATHIONE [Suspect]
     Active Substance: GLUTATHIONE

REACTIONS (1)
  - Incorrect route of product administration [None]

NARRATIVE: CASE EVENT DATE: 20231120
